FAERS Safety Report 7471665-5 (Version None)
Quarter: 2011Q2

REPORT INFORMATION
  Report Type: 
  Country: None (occurrence: None)
  Receive Date: 20110502
  Receipt Date: 20110418
  Transmission Date: 20111010
  Serious: Yes (Hospitalization)
  Sender: FDA-Public Use
  Company Number: 1000020592

PATIENT
  Age: 69 Year
  Sex: Male

DRUGS (13)
  1. INSULIN HUMAN (INSULIN HUMAN)(INSULIN HUMAN) [Concomitant]
  2. DELMUNO (FELODIPINE, RAMIPRIL) (FELODIPINE, RAMIPRIL) [Concomitant]
  3. INSULIN HUMAN (INSULIN HUMAN)(INSULIN HUMAN) [Concomitant]
  4. MAGNESIUM VERLA(MAGNESIUM)(MAGNESIUM) [Concomitant]
  5. ROFLUMILAST (ROFLUMILAST)(500 MICROGRAM, TABLETS) [Suspect]
     Indication: CHRONIC OBSTRUCTIVE PULMONARY DISEASE
     Dosage: 500 MCG (500 MCG, 1 IN 1 D),ORAL
     Route: 048
     Dates: start: 20110207, end: 20110211
  6. DICLOFENAC (DICLOFENAC)(DICLOFENAC) [Concomitant]
  7. NOVAMINSULFON (METAMIZOLE SODIUM) (METAMIZOLE SODIUM) [Concomitant]
  8. ATMADISC (FLUTICASONE, SALMETEROL)(FLUTICASONE, SALMETEROL) [Concomitant]
  9. MELPERONE (MELPERONE)(MELPERONE) [Concomitant]
  10. TARGIN (NALOXONE)(NALOXONE) [Concomitant]
  11. ALLOPURINOL (ALLOPURINOL) (ALLOPURINOL) [Concomitant]
  12. PANTOPRAZOLE (PANTOPRAZOLE) (PANTOPRAZOLE) [Concomitant]
  13. SPIRIVA (TIOTROPIUM BROMIDE) (TIOTROPIUM BROMIDE) [Concomitant]

REACTIONS (3)
  - CONFUSIONAL STATE [None]
  - RESTLESSNESS [None]
  - JOINT DISLOCATION [None]
